FAERS Safety Report 4950014-8 (Version None)
Quarter: 2006Q1

REPORT INFORMATION
  Report Type: 
  Country: None (occurrence: None)
  Receive Date: 20060315
  Receipt Date: 20060221
  Transmission Date: 20060701
  Serious: Yes (Other)
  Sender: FDA-Public Use
  Company Number: CA200602004792

PATIENT
  Age: 73 Year
  Sex: Male

DRUGS (3)
  1. CIALIS [Suspect]
     Dosage: 20 MG
     Dates: start: 20050801
  2. VITAMINS NOS (VITAMINS NOS) [Concomitant]
  3. ZINC (ZINC) [Concomitant]

REACTIONS (4)
  - DRUG INEFFECTIVE [None]
  - SCOTOMA [None]
  - THERAPEUTIC RESPONSE DECREASED [None]
  - VISUAL DISTURBANCE [None]
